FAERS Safety Report 13737720 (Version 1)
Quarter: 2017Q3

REPORT INFORMATION
  Report Type: Spontaneous
  Country: US (occurrence: US)
  Receive Date: 20170710
  Receipt Date: 20170710
  Transmission Date: 20171127
  Serious: No
  Sender: FDA-Public Use
  Company Number: US-SAOL THERAPEUTICS-2016SAO00642

PATIENT
  Age: 21 Year
  Sex: Male

DRUGS (3)
  1. LIORESAL [Suspect]
     Active Substance: BACLOFEN
     Dosage: UNK
     Route: 037
  2. LIORESAL [Suspect]
     Active Substance: BACLOFEN
     Dosage: 500 ?G, \DAY
     Route: 037
     Dates: start: 20160901
  3. LIORESAL [Suspect]
     Active Substance: BACLOFEN
     Dosage: 450 ?G, \DAY
     Dates: start: 20160901, end: 20160901

REACTIONS (3)
  - Sleep disorder [Recovered/Resolved]
  - Tremor [Recovered/Resolved]
  - Underdose [Recovered/Resolved]

NARRATIVE: CASE EVENT DATE: 20160831
